FAERS Safety Report 4958937-0 (Version None)
Quarter: 2006Q1

REPORT INFORMATION
  Report Type: 
  Country: None (occurrence: None)
  Receive Date: 20060324
  Receipt Date: 20060314
  Transmission Date: 20060701
  Serious: Yes (Hospitalization, Other)
  Sender: FDA-Public Use
  Company Number: HQWYE325314MAR06

PATIENT
  Age: 42 Year
  Sex: Female

DRUGS (10)
  1. RAPAMUNE [Suspect]
     Indication: PROPHYLAXIS AGAINST TRANSPLANT REJECTION
     Dosage: 3 MG 1X PER 1 DAY, ORAL
     Route: 048
     Dates: start: 20040929, end: 20041029
  2. TACROLIMUS (TACROLIMUS) [Concomitant]
  3. NYSTATINE (NYSTATIN) [Concomitant]
  4. PREDNISONE TAB [Concomitant]
  5. AMLODIPINE [Concomitant]
  6. SULFAMETHOXAZOLE + TRIMETHOPRIM [Concomitant]
  7. HEPARIN [Concomitant]
  8. ASPIRIN [Concomitant]
  9. CEFTRIAXONE [Concomitant]
  10. FERRUM (FERROUS FUMARATE) [Concomitant]

REACTIONS (3)
  - ABDOMINAL PAIN [None]
  - PANCREATIC FISTULA [None]
  - VOMITING [None]
